FAERS Safety Report 14893129 (Version 1)
Quarter: 2018Q2

REPORT INFORMATION
  Report Type: Spontaneous
  Country: US (occurrence: US)
  Receive Date: 20180514
  Receipt Date: 20180514
  Transmission Date: 20180711
  Serious: No
  Sender: FDA-Public Use
  Company Number: US-PERNIX THERAPEUTICS-US-2018PER001628

PATIENT

DRUGS (5)
  1. SILENOR [Suspect]
     Active Substance: DOXEPIN HYDROCHLORIDE
     Dosage: 6 MG, SINGLE BEFORE BED TIME
     Dates: start: 20180126, end: 20180126
  2. SILENOR [Suspect]
     Active Substance: DOXEPIN HYDROCHLORIDE
     Dosage: 3 MG, SINGLE BEFORE BED TIME
     Dates: start: 20180127, end: 20180127
  3. SILENOR [Suspect]
     Active Substance: DOXEPIN HYDROCHLORIDE
     Dosage: 6 MG, SINGLE BEFORE BED TIME
     Dates: start: 20180128, end: 20180128
  4. SILENOR [Suspect]
     Active Substance: DOXEPIN HYDROCHLORIDE
     Dosage: 3MG/6MG, QD
     Route: 048
     Dates: start: 20180129
  5. SILENOR [Suspect]
     Active Substance: DOXEPIN HYDROCHLORIDE
     Indication: INSOMNIA
     Dosage: 3 MG, SINGLE BEFORE BED TIME
     Route: 048
     Dates: start: 20180125, end: 20180125

REACTIONS (1)
  - Drug ineffective [Not Recovered/Not Resolved]

NARRATIVE: CASE EVENT DATE: 20180125
